FAERS Safety Report 7978434-8 (Version None)
Quarter: 2011Q4

REPORT INFORMATION
  Report Type: 
  Country: None (occurrence: None)
  Receive Date: 20111129
  Receipt Date: 20110726
  Transmission Date: 20120403
  Serious: No
  Sender: FDA-Public Use
  Company Number: PHHY2011US61483

PATIENT
  Age: 63 Year
  Sex: Male

DRUGS (10)
  1. CALCITRIOL (CALCITRIOL) 08/06/2010 TO UNK [Concomitant]
  2. CLONIDINE (CLONIDINE) 08/06/2010 TO UNK [Concomitant]
  3. NOVOLOG (INSULIN ASPART) 04/03/2010 TO UNK [Concomitant]
  4. LEVOTHYROXINE (LEVOTHYROXINE) 04/03/2010 TO UNK [Concomitant]
  5. ISOSORB (ISOSORBIDE DINITRATE) 04/03/2010 TO UNK [Concomitant]
  6. AFINITOR [Suspect]
     Indication: NEOPLASM MALIGNANT
     Dosage: 10 MG, QD, ORAL
     Route: 048
  7. FUROSEMID (FUROSEMIDE) 04/03/2010 TO UNK [Concomitant]
  8. METOPROLOL (METOPROLOL) 04/03/2010 TO UNK [Concomitant]
  9. LANTUS (INSULIN GLARGINE) 04/03/2010 TO UNK [Concomitant]
  10. CASTOR OIL (RICINUS COMMUNIS OIL) 04/03/2010 TO UNK [Concomitant]

REACTIONS (2)
  - DYSGEUSIA [None]
  - QUALITY OF LIFE DECREASED [None]
